FAERS Safety Report 6203958-3 (Version None)
Quarter: 2009Q2

REPORT INFORMATION
  Report Type: 
  Country: None (occurrence: None)
  Receive Date: 20090527
  Receipt Date: 20090423
  Transmission Date: 20091009
  Serious: Yes (Other)
  Sender: FDA-Public Use
  Company Number: B0565900A

PATIENT
  Sex: Male

DRUGS (6)
  1. ZOFRAN [Suspect]
     Indication: PROPHYLAXIS OF NAUSEA AND VOMITING
     Dosage: 4MG PER DAY
     Route: 042
     Dates: start: 20090106, end: 20090319
  2. TS-1 [Concomitant]
     Route: 048
     Dates: start: 20080717
  3. CAMPTOSAR [Concomitant]
     Route: 042
     Dates: start: 20090106
  4. ASPIRIN [Concomitant]
     Route: 048
  5. SERMION [Concomitant]
     Route: 048
  6. AMLODIPINE [Concomitant]
     Route: 048

REACTIONS (4)
  - DIZZINESS [None]
  - EYELID PTOSIS [None]
  - FALL [None]
  - OCULOGYRIC CRISIS [None]
